FAERS Safety Report 8345256-8 (Version None)
Quarter: 2012Q2

REPORT INFORMATION
  Report Type: 
  Country: None (occurrence: None)
  Receive Date: 20120508
  Receipt Date: 20120426
  Transmission Date: 20120825
  Serious: Yes (Death, Other)
  Sender: FDA-Public Use
  Company Number: IT-CELGENEUS-083-21880-11060622

PATIENT
  Sex: Male
  Weight: 48 kg

DRUGS (4)
  1. GRANULOKINE [Suspect]
     Dosage: 128.5714 MICROGRAM
     Route: 058
  2. EPREX [Suspect]
     Dosage: 11428.5714 IU (INTERNATIONAL UNIT)
     Route: 058
  3. REVLIMID [Suspect]
     Indication: MULTIPLE MYELOMA
     Dosage: 10 MILLIGRAM
     Route: 048
  4. DEXAMETHASONE [Suspect]
     Indication: MULTIPLE MYELOMA
     Dosage: 40 MILLIGRAM
     Route: 048

REACTIONS (4)
  - ACUTE PULMONARY OEDEMA [None]
  - CARDIO-RESPIRATORY ARREST [None]
  - RENAL FAILURE [None]
  - BRONCHOPNEUMONIA [None]
